FAERS Safety Report 20590761 (Version 5)
Quarter: 2023Q1

REPORT INFORMATION
  Report Type: Report from Study
  Country: CA (occurrence: CA)
  Receive Date: 20220314
  Receipt Date: 20230111
  Transmission Date: 20230418
  Serious: Yes (Other)
  Sender: FDA-Public Use
  Company Number: CA-JNJFOC-20210712271

PATIENT
  Age: 53 Year
  Sex: Male

DRUGS (4)
  1. SIMPONI [Suspect]
     Active Substance: GOLIMUMAB
     Indication: Rheumatoid arthritis
     Route: 058
     Dates: start: 20130521
  2. SIMPONI [Suspect]
     Active Substance: GOLIMUMAB
     Dosage: EXPIRY DATE- 28-FEB-2025
     Route: 058
     Dates: start: 20141208
  3. SIMPONI [Suspect]
     Active Substance: GOLIMUMAB
     Route: 058
     Dates: start: 20200501
  4. SIMPONI [Suspect]
     Active Substance: GOLIMUMAB
     Route: 058
     Dates: start: 20221101

REACTIONS (3)
  - Arthritis infective [Recovered/Resolved]
  - Knee operation [Unknown]
  - Knee arthroplasty [Unknown]
